FAERS Safety Report 6366530-0 (Version None)
Quarter: 2009Q3

REPORT INFORMATION
  Report Type: 
  Country: None (occurrence: None)
  Receive Date: 20090921
  Receipt Date: 20090910
  Transmission Date: 20100115
  Serious: Yes (Hospitalization)
  Sender: FDA-Public Use
  Company Number: JP-ASTRAZENECA-2009SE12856

PATIENT
  Age: 30 Year
  Sex: Male
  Weight: 80 kg

DRUGS (1)
  1. TENORMIN [Suspect]
     Dosage: THE PATIENT TOOK 26 TABLETS OF 25 MG = 650 MG
     Route: 048
     Dates: start: 20090906, end: 20090906

REACTIONS (2)
  - BRADYCARDIA [None]
  - OVERDOSE [None]
